FAERS Safety Report 8003029-X (Version None)
Quarter: 2011Q4

REPORT INFORMATION
  Report Type: 
  Country: None (occurrence: None)
  Receive Date: 20111222
  Receipt Date: 20110928
  Transmission Date: 20120403
  Serious: No
  Sender: FDA-Public Use
  Company Number: US-GLAXOSMITHKLINE-A0946311A

PATIENT
  Age: 88 Year
  Sex: Male

DRUGS (7)
  1. ALDARA [Concomitant]
  2. CLONIDINE [Concomitant]
  3. COSOPT [Concomitant]
  4. TRAVATAN [Concomitant]
  5. ALPHAGAN [Concomitant]
  6. OTHER MEDICATIONS [Concomitant]
  7. AVODART [Suspect]
     Indication: BENIGN PROSTATIC HYPERPLASIA
     Dosage: 1TAB PER DAY
     Route: 048

REACTIONS (1)
  - HAIR GROWTH ABNORMAL [None]
